FAERS Safety Report 22064373 (Version 1)
Quarter: 2023Q1

REPORT INFORMATION
  Report Type: Spontaneous
  Country: CN (occurrence: CN)
  Receive Date: 20230306
  Receipt Date: 20230306
  Transmission Date: 20230417
  Serious: Yes (Life-Threatening)
  Sender: FDA-Public Use
  Company Number: CN-PFIZER INC-PV202300040264

PATIENT
  Age: 54 Year
  Sex: Female
  Weight: 43 kg

DRUGS (6)
  1. CYTARABINE [Suspect]
     Active Substance: CYTARABINE
     Indication: Acute leukaemia
     Dosage: 2.5 G, 1X/DAY
     Dates: start: 20230206, end: 20230206
  2. CYTARABINE [Suspect]
     Active Substance: CYTARABINE
     Dosage: 2.5 G, 1X/DAY
     Dates: start: 20230208, end: 20230208
  3. CYTARABINE [Suspect]
     Active Substance: CYTARABINE
     Dosage: 2.5 G, 1X/DAY
     Dates: start: 20230210, end: 20230210
  4. SODIUM CHLORIDE [Concomitant]
     Active Substance: SODIUM CHLORIDE
     Indication: Vehicle solution use
     Dosage: UNK
     Dates: start: 20230206, end: 20230206
  5. SODIUM CHLORIDE [Concomitant]
     Active Substance: SODIUM CHLORIDE
     Dosage: UNK
     Dates: start: 20230208, end: 20230208
  6. SODIUM CHLORIDE [Concomitant]
     Active Substance: SODIUM CHLORIDE
     Dosage: UNK
     Dates: start: 20230210, end: 20230210

REACTIONS (2)
  - Myelosuppression [Recovering/Resolving]
  - Pyrexia [Recovering/Resolving]

NARRATIVE: CASE EVENT DATE: 20230219
